FAERS Safety Report 16323341 (Version 7)
Quarter: 2024Q4

REPORT INFORMATION
  Report Type: Other
  Country: FR (occurrence: FR)
  Receive Date: 20190517
  Receipt Date: 20241205
  Transmission Date: 20250115
  Serious: Yes (Life-Threatening, Hospitalization, Other)
  Sender: Atnahs Healthcare
  Company Number: FR-ASTRAZENECA-2019SE68516

PATIENT
  Age: 39 Year
  Sex: Female

DRUGS (6)
  1. DIAZEPAM [Suspect]
     Active Substance: DIAZEPAM
     Indication: Toxicity to various agents
     Dosage: 100MG FREQUENCY : 1 FREQUENCY TIME : 1 FREQUENCY TIME UNIT : TOTAL
     Route: 048
  2. PROPRANOLOL [Interacting]
     Active Substance: PROPRANOLOL HYDROCHLORIDE
     Indication: Toxicity to various agents
     Dosage: 400MG FREQUENCY : 1 FREQUENCY TIME : 1 FREQUENCY TIME UNIT : TOTAL
     Route: 048
  3. VALPROATE SODIUM [Interacting]
     Active Substance: VALPROATE SODIUM
     Indication: Toxicity to various agents
     Dosage: 19 G FREQUENCY : 1 FREQUENCY TIME : 1 FREQUENCY TIME UNIT : TOTAL
     Route: 048
  4. ALPRAZOLAM [Interacting]
     Active Substance: ALPRAZOLAM
     Indication: Toxicity to various agents
     Dosage: 20MG FREQUENCY : 1 FREQUENCY TIME : 1 FREQUENCY TIME UNIT : TOTAL
     Route: 048
  5. QUETIAPINE [Interacting]
     Active Substance: QUETIAPINE
     Indication: Major depression
     Dosage: 4 G FREQUENCY TIME : 1 FREQUENCY TIME UNIT : TOTAL
     Route: 048
  6. QUETIAPINE [Interacting]
     Active Substance: QUETIAPINE
     Indication: Toxicity to various agents

REACTIONS (15)
  - Blood creatine phosphokinase increased [Unknown]
  - Off label use [Unknown]
  - Lung disorder [Unknown]
  - Heart rate decreased [Unknown]
  - Blood pressure systolic decreased [Unknown]
  - Sinus rhythm [Unknown]
  - Toxicity to various agents [Unknown]
  - Intentional overdose [Unknown]
  - Intentional product use issue [Unknown]
  - Coma [Recovering/Resolving]
  - Condition aggravated [Recovering/Resolving]
  - Pneumonia aspiration [Unknown]
  - Electrocardiogram QRS complex shortened [Unknown]
  - Hypotension [Unknown]
  - Drug interaction [Unknown]
